FAERS Safety Report 7834079-1 (Version None)
Quarter: 2011Q4

REPORT INFORMATION
  Report Type: 
  Country: None (occurrence: None)
  Receive Date: 20111024
  Receipt Date: 20111024
  Transmission Date: 20120403
  Serious: Yes (Other)
  Sender: FDA-Public Use
  Company Number: None

PATIENT
  Age: 68 Year
  Sex: Female
  Weight: 58.967 kg

DRUGS (3)
  1. VITAMIN B-12 [Concomitant]
  2. ZOLPIDEM [Suspect]
     Indication: INSOMNIA
     Dates: start: 20110712, end: 20110901
  3. LOVAZA [Concomitant]

REACTIONS (7)
  - PARAESTHESIA [None]
  - DYSKINESIA [None]
  - DRY MOUTH [None]
  - DRUG HYPERSENSITIVITY [None]
  - HEADACHE [None]
  - DRUG WITHDRAWAL SYNDROME [None]
  - NERVOUS SYSTEM DISORDER [None]
